FAERS Safety Report 21290123 (Version 4)
Quarter: 2022Q3

REPORT INFORMATION
  Report Type: Spontaneous
  Country: US (occurrence: US)
  Receive Date: 20220902
  Receipt Date: 20220929
  Transmission Date: 20221026
  Serious: Yes (Other)
  Sender: FDA-Public Use
  Company Number: US-PFIZER INC-202201112683

PATIENT
  Age: 62 Year
  Sex: Female
  Weight: 62.6 kg

DRUGS (5)
  1. IBRANCE [Suspect]
     Active Substance: PALBOCICLIB
     Indication: Breast cancer metastatic
     Dosage: 125 MG, CYCLIC (21 DAYS ON 7 DAYS OFF)
     Route: 048
  2. IBRANCE [Suspect]
     Active Substance: PALBOCICLIB
     Dosage: 100 MG, CYCLIC (ONE TABLET DAILY FOR THREE WEEK AND THEN ONE WEEK OFF)
     Route: 048
     Dates: start: 20220622
  3. LETROZOLE [Concomitant]
     Active Substance: LETROZOLE
     Dosage: 2.5 MG, DAILY
  4. ALPRAZOLAM [Concomitant]
     Active Substance: ALPRAZOLAM
     Dosage: 2 MG, AS NEEDED (TABLET UP TO 3 TIME)
  5. DOXEPIN [Concomitant]
     Active Substance: DOXEPIN
     Dosage: 50 MG

REACTIONS (3)
  - White blood cell count decreased [Unknown]
  - Anaemia [Unknown]
  - Peripheral swelling [Unknown]

NARRATIVE: CASE EVENT DATE: 20220101
